FAERS Safety Report 20316452 (Version 1)
Quarter: 2022Q1

REPORT INFORMATION
  Report Type: Spontaneous
  Country: DE (occurrence: DE)
  Receive Date: 20220110
  Receipt Date: 20220110
  Transmission Date: 20220423
  Serious: Yes (Hospitalization)
  Sender: FDA-Public Use
  Company Number: DE-002147023-NVSC2021DE205727

PATIENT
  Sex: Female

DRUGS (6)
  1. OMEPRAZOLE [Suspect]
     Active Substance: OMEPRAZOLE
     Indication: Product used for unknown indication
     Dosage: UNK UNK, PRN(AS NEEDED) ()
     Route: 065
  2. OMEPRAZOLE [Suspect]
     Active Substance: OMEPRAZOLE
     Dosage: 1 DF, EVERY 3 DAY
     Route: 065
     Dates: start: 2021
  3. GLYCOPYRRONIUM\INDACATEROL [Suspect]
     Active Substance: GLYCOPYRRONIUM\INDACATEROL
     Indication: Product used for unknown indication
     Dosage: UNK, QD ()
     Route: 065
     Dates: end: 20210904
  4. GLYCOPYRRONIUM\INDACATEROL [Suspect]
     Active Substance: GLYCOPYRRONIUM\INDACATEROL
     Dosage: 1 DF, EVERY 3 DAY
     Route: 065
     Dates: start: 2021
  5. GLYCOPYRRONIUM\INDACATEROL [Suspect]
     Active Substance: GLYCOPYRRONIUM\INDACATEROL
     Dosage: UNK, QD ()
     Route: 065
     Dates: start: 2020
  6. ALBUTEROL [Concomitant]
     Active Substance: ALBUTEROL
     Indication: Product used for unknown indication
     Dosage: UNK, PRN (AS NEEDED) ()
     Route: 065

REACTIONS (10)
  - Rash [Recovering/Resolving]
  - Dyspnoea [Unknown]
  - Wheezing [Unknown]
  - Myalgia [Unknown]
  - Chronic obstructive pulmonary disease [Unknown]
  - Pain in extremity [Unknown]
  - Sleep disorder [Unknown]
  - Cough [Unknown]
  - Diarrhoea [Unknown]
  - Inappropriate schedule of product administration [Unknown]

NARRATIVE: CASE EVENT DATE: 20210101
